FAERS Safety Report 19647678 (Version 1)
Quarter: 2021Q3

REPORT INFORMATION
  Report Type: Report from Study
  Country: US (occurrence: US)
  Receive Date: 20210802
  Receipt Date: 20210802
  Transmission Date: 20211014
  Serious: Yes (Hospitalization)
  Sender: FDA-Public Use
  Company Number: US-OTSUKA-2021_026563

PATIENT
  Sex: Male

DRUGS (2)
  1. ACYCLOVIR [ACICLOVIR SODIUM] [Concomitant]
     Active Substance: ACYCLOVIR
     Indication: PRODUCT USED FOR UNKNOWN INDICATION
     Dosage: UNK
     Route: 065
  2. CEDAZURIDINE AND DECITABINE [Suspect]
     Active Substance: CEDAZURIDINE\DECITABINE
     Indication: MYELODYSPLASTIC SYNDROME
     Dosage: 35/100 MG(35 MG DECITABINE AND 100 MG CEDAZURIDINE), QD FOR 5 DAYS EACH MONTH
     Route: 048
     Dates: start: 20210109

REACTIONS (1)
  - Adverse drug reaction [Recovered/Resolved]
